FAERS Safety Report 22332119 (Version 1)
Quarter: 2023Q2

REPORT INFORMATION
  Report Type: Spontaneous
  Country: US (occurrence: None)
  Receive Date: 20230516
  Receipt Date: 20230516
  Transmission Date: 20230722
  Serious: Yes (Other)
  Sender: FDA-Public Use
  Company Number: None

PATIENT
  Age: 41 Year
  Sex: Male
  Weight: 71.3 kg

DRUGS (5)
  1. CABENUVA [Suspect]
     Active Substance: CABOTEGRAVIR\RILPIVIRINE
     Indication: HIV infection
     Dosage: OTHER FREQUENCY : MONTHLY X 2 MONTHS;?
     Route: 030
     Dates: start: 20230208, end: 20230308
  2. ALBUTEROL SULFATE [Concomitant]
     Active Substance: ALBUTEROL SULFATE
  3. clotrimazole-betamethasone topical cream [Concomitant]
  4. MELOXICAM [Concomitant]
     Active Substance: MELOXICAM
  5. VITAMINS [Concomitant]
     Active Substance: VITAMINS

REACTIONS (3)
  - Viral load increased [None]
  - Virologic failure [None]
  - Therapy cessation [None]

NARRATIVE: CASE EVENT DATE: 20230317
